FAERS Safety Report 9464498 (Version 1)
Quarter: 2013Q3

REPORT INFORMATION
  Report Type: Spontaneous
  Country: US (occurrence: US)
  Receive Date: 20130819
  Receipt Date: 20130819
  Transmission Date: 20140515
  Serious: No
  Sender: FDA-Public Use
  Company Number: US-PFIZER INC-2013238708

PATIENT
  Age: 48 Year
  Sex: Male

DRUGS (1)
  1. CHANTIX [Suspect]
     Indication: SMOKING CESSATION THERAPY
     Dosage: UNK
     Dates: start: 201305, end: 201305

REACTIONS (3)
  - Mood altered [Recovered/Resolved]
  - Aggression [Recovered/Resolved]
  - Hostility [Recovered/Resolved]
